FAERS Safety Report 16577494 (Version 1)
Quarter: 2019Q3

REPORT INFORMATION
  Report Type: Spontaneous
  Country: GB (occurrence: GB)
  Receive Date: 20190716
  Receipt Date: 20190716
  Transmission Date: 20191004
  Serious: Yes (Disabling)
  Sender: FDA-Public Use
  Company Number: GB-PFIZER INC-2019297559

PATIENT
  Age: 74 Year
  Sex: Male
  Weight: 70 kg

DRUGS (20)
  1. LOPERAMIDE [Concomitant]
     Active Substance: LOPERAMIDE
     Dosage: UNK, (TAKE UP TO 10 A DAY)
     Dates: start: 20180813
  2. LEVOFLOXACIN. [Suspect]
     Active Substance: LEVOFLOXACIN
     Dosage: 500 MG, UNK
     Dates: start: 20190523
  3. SILDENAFIL. [Concomitant]
     Active Substance: SILDENAFIL
     Dosage: 1 DF, UNK
     Dates: start: 20180813
  4. MAGNASPARTATE [Concomitant]
     Dosage: 2 DF, 1X/DAY, SACHET AS DIRECTED
     Dates: start: 20180813
  5. COLESEVELAM HYDROCHLORIDE. [Concomitant]
     Active Substance: COLESEVELAM HYDROCHLORIDE
     Dosage: 3 DF, 1X/DAY
     Dates: start: 20190502
  6. RAMIPRIL. [Concomitant]
     Active Substance: RAMIPRIL
     Dosage: 1 DF, 1X/DAY
     Dates: start: 20180813
  7. FORCEVAL [ASCORBIC ACID;BIOTIN;CALCIUM;CHROMIUM;COPPER;ERGOCALCIFEROL; [Concomitant]
     Dosage: 1 DF, 1X/DAY
     Dates: start: 20190523, end: 20190607
  8. APIXABAN [Concomitant]
     Active Substance: APIXABAN
     Dosage: 2 DF, 1X/DAY, (REVIEW DOSE AFTER FIRST)
     Dates: start: 20190222, end: 20190523
  9. CODEINE PHOSPHATE [Concomitant]
     Active Substance: CODEINE PHOSPHATE
     Dosage: UNK, (TAKE ONE OR TWO TABLETS  THREE OR FOUR TIMES A DAY)
     Dates: start: 20190415, end: 20190513
  10. SIMVASTATIN. [Concomitant]
     Active Substance: SIMVASTATIN
     Dosage: 1 DF, 1X/DAY
     Dates: start: 20180813
  11. TRIMETHOPRIM. [Concomitant]
     Active Substance: TRIMETHOPRIM
     Dosage: 2 DF, 1X/DAY
     Dates: start: 20190322, end: 20190329
  12. OMEPRAZOLE. [Concomitant]
     Active Substance: OMEPRAZOLE
     Dosage: 1 DF, 1X/DAY
     Dates: start: 20181101
  13. ALLOPURINOL. [Concomitant]
     Active Substance: ALLOPURINOL
     Dosage: 1 DF, 1X/DAY
     Dates: start: 20180813
  14. TESTOGEL [Concomitant]
     Active Substance: TESTOSTERONE
     Dosage: 1 DF, 1X/DAY, (APPLY)
     Dates: start: 20180816
  15. MULTIVITAMINS [VITAMINS NOS]/DEKAS PLUS [Concomitant]
     Dosage: 3 DF, 1X/DAY
     Dates: start: 20180813
  16. LEVOTHYROXINE. [Concomitant]
     Active Substance: LEVOTHYROXINE
     Dosage: 1 DF, 1X/DAY
     Dates: start: 20180813
  17. PREDNISOLONE. [Concomitant]
     Active Substance: PREDNISOLONE
     Dosage: UNK, (TAKE AS PER REDUCING DOSE)
     Dates: start: 20180813
  18. DIORALYTE [CITRIC ACID;GLUCOSE;POTASSIUM CHLORIDE;SODIUM BICARBONATE;S [Concomitant]
     Dosage: 1 DF, UNK
     Dates: start: 20180813
  19. HYDROXOCOBALAMIN [Concomitant]
     Active Substance: HYDROXOCOBALAMIN
     Dosage: 1 DF, EVERY 3 MONTHS
     Dates: start: 20180813
  20. CALCIUM CARBONATE. [Concomitant]
     Active Substance: CALCIUM CARBONATE
     Dosage: 2 DF, 1X/DAY
     Dates: start: 20180813

REACTIONS (1)
  - Tendon discomfort [Recovering/Resolving]

NARRATIVE: CASE EVENT DATE: 20190523
